FAERS Safety Report 4702439-3 (Version None)
Quarter: 2005Q2

REPORT INFORMATION
  Report Type: 
  Country: None (occurrence: None)
  Receive Date: 20050208
  Receipt Date: 20050208
  Transmission Date: 20051028
  Serious: Yes (Other)
  Sender: FDA-Public Use
  Company Number: None

PATIENT
  Age: 66 Year
  Sex: Female
  Weight: 87.5442 kg

DRUGS (4)
  1. METFORMIN HCL [Suspect]
     Indication: DERMATITIS
     Dosage: 3 TAB PO DAILY
     Route: 048
     Dates: start: 20040312, end: 20040802
  2. GLIPIZIDE [Concomitant]
  3. LANTUS [Concomitant]
  4. LOTENSIN [Concomitant]

REACTIONS (2)
  - DERMATITIS [None]
  - FOLLICULITIS [None]
